FAERS Safety Report 20763438 (Version 1)
Quarter: 2022Q2

REPORT INFORMATION
  Report Type: Spontaneous
  Country: US (occurrence: US)
  Receive Date: 20220428
  Receipt Date: 20220428
  Transmission Date: 20220720
  Serious: No
  Sender: FDA-Public Use
  Company Number: US-PFIZER INC-202200483663

PATIENT
  Age: 67 Year
  Sex: Female

DRUGS (1)
  1. IBRANCE [Suspect]
     Active Substance: PALBOCICLIB
     Indication: Breast cancer metastatic
     Dosage: 125 MG

REACTIONS (8)
  - Product dose omission issue [Unknown]
  - Epistaxis [Unknown]
  - Headache [Unknown]
  - Chills [Unknown]
  - Dry skin [Unknown]
  - Respiratory tract infection [Unknown]
  - Nausea [Unknown]
  - Pyrexia [Unknown]
